FAERS Safety Report 14350074 (Version 1)
Quarter: 2018Q1

REPORT INFORMATION
  Report Type: Spontaneous
  Country: US (occurrence: US)
  Receive Date: 20180104
  Receipt Date: 20180104
  Transmission Date: 20180509
  Serious: Yes (Other)
  Sender: FDA-Public Use
  Company Number: US-LUNDBECK-DKLU2041907

PATIENT
  Sex: Female

DRUGS (4)
  1. PROPANOLOL [Concomitant]
     Active Substance: PROPRANOLOL HYDROCHLORIDE
     Indication: PRODUCT USED FOR UNKNOWN INDICATION
     Route: 065
  2. KEPPRA [Concomitant]
     Active Substance: LEVETIRACETAM
     Indication: PRODUCT USED FOR UNKNOWN INDICATION
     Route: 065
  3. ONFI [Suspect]
     Active Substance: CLOBAZAM
     Indication: SEIZURE
     Route: 048
     Dates: start: 201612
  4. ONFI [Suspect]
     Active Substance: CLOBAZAM
     Dosage: WEANING DOSE
     Route: 048

REACTIONS (5)
  - Seizure [Not Recovered/Not Resolved]
  - Visual impairment [Unknown]
  - Somnambulism [Unknown]
  - Pyrexia [Unknown]
  - Rash [Unknown]
